FAERS Safety Report 4683441-7 (Version None)
Quarter: 2005Q2

REPORT INFORMATION
  Report Type: 
  Country: None (occurrence: None)
  Receive Date: 20050607
  Receipt Date: 20050526
  Transmission Date: 20051028
  Serious: Yes (Hospitalization)
  Sender: FDA-Public Use
  Company Number: CA-JNJFOC-20050507369

PATIENT
  Age: 48 Year
  Sex: Male

DRUGS (11)
  1. REMICADE [Suspect]
     Indication: CROHN'S DISEASE
     Route: 042
  2. TPN [Concomitant]
  3. TPN [Concomitant]
  4. TPN [Concomitant]
  5. ALLOPURINOL [Concomitant]
  6. VITAMIN D [Concomitant]
  7. CALCIUM GLUCONATE [Concomitant]
  8. PAMIDRONATE DISODIUM [Concomitant]
  9. ESOMEPRAZOLE [Concomitant]
  10. PREDNISONE [Concomitant]
  11. SOLU-MEDROL [Concomitant]
     Route: 042

REACTIONS (4)
  - BLOOD LACTATE DEHYDROGENASE INCREASED [None]
  - FEELING ABNORMAL [None]
  - GASTROINTESTINAL HAEMORRHAGE [None]
  - PYREXIA [None]
